FAERS Safety Report 7455976-5 (Version None)
Quarter: 2011Q2

REPORT INFORMATION
  Report Type: 
  Country: None (occurrence: None)
  Receive Date: 20110426
  Receipt Date: 20110411
  Transmission Date: 20111010
  Serious: Yes (Other)
  Sender: FDA-Public Use
  Company Number: 2011P1006036

PATIENT
  Age: 65 Year
  Sex: Female

DRUGS (6)
  1. CITALOPRAM HYDROBROMIDE [Suspect]
     Indication: DEPRESSION
  2. FENTANYL [Suspect]
     Indication: BACK PAIN
     Dosage: 25 MCG/HR; TDER
     Route: 062
  3. TOLTERODINE TARTRATE [Concomitant]
  4. OVER-THE-COUNTER NON-STEROIDAL ANTI-INFLAMMATORY MEDICATIONS [Concomitant]
  5. RABEPRAZOLE SODIUM [Concomitant]
  6. HYDROCODONE BITARTRATE [Concomitant]

REACTIONS (6)
  - PLATELET COUNT INCREASED [None]
  - SEROTONIN SYNDROME [None]
  - RETROPERITONEAL HAEMORRHAGE [None]
  - POTENTIATING DRUG INTERACTION [None]
  - WHITE BLOOD CELL COUNT INCREASED [None]
  - BLOOD ALKALINE PHOSPHATASE INCREASED [None]
